FAERS Safety Report 16637889 (Version 1)
Quarter: 2019Q3

REPORT INFORMATION
  Report Type: Spontaneous
  Country: US (occurrence: US)
  Receive Date: 20190726
  Receipt Date: 20190726
  Transmission Date: 20191004
  Serious: No
  Sender: FDA-Public Use
  Company Number: None

PATIENT
  Age: 46 Year
  Sex: Male
  Weight: 83.25 kg

DRUGS (1)
  1. MODAFINIL. [Suspect]
     Active Substance: MODAFINIL
     Dosage: ?          QUANTITY:30 TABLET(S);OTHER ROUTE:BY MOUTH?
     Dates: start: 20190722, end: 20190724

REACTIONS (7)
  - Tremor [None]
  - Vision blurred [None]
  - Product complaint [None]
  - Nystagmus [None]
  - Product substitution issue [None]
  - Confusional state [None]
  - Apraxia [None]

NARRATIVE: CASE EVENT DATE: 20190722
